FAERS Safety Report 7934995-6 (Version None)
Quarter: 2011Q4

REPORT INFORMATION
  Report Type: 
  Country: None (occurrence: None)
  Receive Date: 20111122
  Receipt Date: 20111107
  Transmission Date: 20120403
  Serious: Yes (Other)
  Sender: FDA-Public Use
  Company Number: FR-ASTELLAS-2011EU006701

PATIENT
  Sex: Male
  Weight: 120 kg

DRUGS (21)
  1. INSULIN [Concomitant]
     Dosage: UNK
     Route: 065
  2. PROPOFOL [Concomitant]
     Dosage: UNK
     Route: 065
  3. PIPERACILLIN AND TAZOBACTAM [Concomitant]
     Indication: SEPTIC SHOCK
     Dosage: UNK G, UNKNOWN/D
     Route: 042
     Dates: start: 20101013, end: 20101104
  4. VANCOMYCIN [Concomitant]
     Indication: SEPTIC SHOCK
     Dosage: UNK G, UNKNOWN/D
     Route: 042
     Dates: start: 20101105, end: 20101113
  5. TIENAM [Concomitant]
     Indication: SEPTIC SHOCK
     Dosage: 1000 MG, TID
     Route: 042
     Dates: start: 20101004, end: 20101006
  6. MICAFUNGIN INJECTION [Suspect]
     Indication: PROPHYLAXIS
     Dosage: 100 MG, UNKNOWN/D
     Route: 042
     Dates: start: 20101102, end: 20101114
  7. METHYLPREDNISOLONE [Concomitant]
     Indication: LIVER TRANSPLANT
     Dosage: 20 MG, UNKNOWN/D
     Route: 042
     Dates: start: 20101104, end: 20101114
  8. CORDARONE [Concomitant]
     Indication: ATRIAL FIBRILLATION
     Dosage: 300 MG, UID/QD
     Route: 042
     Dates: start: 20101102, end: 20101116
  9. ASPEGIC 325 [Concomitant]
     Dosage: 75 MG, UID/QD
     Route: 065
  10. MYCOPHENOLATE MOFETIL (CELLCEPT) [Concomitant]
     Indication: LIVER TRANSPLANT
     Dosage: 2 G, UNKNOWN/D
     Route: 048
     Dates: start: 20101104
  11. NOREPINEPHRINE BITARTRATE [Concomitant]
     Dosage: UNK
     Route: 065
  12. PROGRAF [Suspect]
     Indication: LIVER TRANSPLANT
     Dosage: UNK
     Route: 065
     Dates: end: 20101207
  13. SOLU-MEDROL [Suspect]
     Indication: LIVER TRANSPLANT
     Dosage: 500 MG, UNKNOWN/D
     Route: 065
  14. GENTAMICIN [Concomitant]
     Indication: SEPTIC SHOCK
     Dosage: 500 MG, UNKNOWN/D
     Route: 042
     Dates: start: 20101112, end: 20101115
  15. ZOVIRAX [Concomitant]
     Indication: SEPTIC SHOCK
     Dosage: 500 MG, BID
     Route: 042
     Dates: start: 20101030, end: 20101112
  16. MICAFUNGIN INJECTION [Suspect]
     Indication: SEPTIC SHOCK
  17. COLIMYCINE [Concomitant]
     Indication: SEPTIC SHOCK
     Dosage: 6000000 IU, UNKNOWN/D
     Route: 042
     Dates: start: 20101112, end: 20101117
  18. HEPARIN [Concomitant]
     Dosage: UNK
     Route: 065
  19. SIMULECT [Suspect]
     Indication: LIVER TRANSPLANT
     Dosage: 20 MG, UNKNOWN/D
     Route: 065
  20. ACYCLOVIR [Concomitant]
     Indication: IMMUNODEFICIENCY
     Dosage: 1500 MG, UNKNOWN/D
     Route: 042
     Dates: start: 20101112, end: 20101115
  21. NEXIUM [Concomitant]
     Indication: PROPHYLAXIS AGAINST GASTROINTESTINAL ULCER
     Dosage: 40 MG, BID
     Route: 050
     Dates: start: 20101018, end: 20101220

REACTIONS (3)
  - CHOLESTASIS [None]
  - ALTERED STATE OF CONSCIOUSNESS [None]
  - IMMUNOSUPPRESSANT DRUG LEVEL INCREASED [None]
